FAERS Safety Report 6427028-4 (Version None)
Quarter: 2009Q4

REPORT INFORMATION
  Report Type: 
  Country: None (occurrence: None)
  Receive Date: 20091029
  Receipt Date: 20091023
  Transmission Date: 20100525
  Serious: Yes (Other)
  Sender: FDA-Public Use
  Company Number: A0813096A

PATIENT
  Age: 67 Year
  Sex: Female

DRUGS (1)
  1. METHYLCELLULOSE SUSPENSION REGULAR (METHYLCELLULOSE) [Suspect]
     Indication: DRUG USE FOR UNKNOWN INDICATION
     Dosage: ORAL
     Route: 048

REACTIONS (1)
  - GLUCOSE TOLERANCE IMPAIRED [None]
